FAERS Safety Report 9882406 (Version 1)
Quarter: 2014Q1

REPORT INFORMATION
  Report Type: Spontaneous
  Country: FR (occurrence: FR)
  Receive Date: 20140207
  Receipt Date: 20140207
  Transmission Date: 20141002
  Serious: Yes (Other)
  Sender: FDA-Public Use
  Company Number: FR-PFIZER INC-2014032534

PATIENT
  Age: 93 Year
  Sex: Female

DRUGS (8)
  1. TRIATEC [Suspect]
     Dosage: 1 DF, DAILY
     Route: 048
     Dates: start: 20131028, end: 20131108
  2. PRIMPERAN [Suspect]
     Dosage: UNK
     Route: 042
     Dates: start: 20131028, end: 20131106
  3. COLCHICINE OPOCALCIUM [Suspect]
     Dosage: UNK
     Route: 048
     Dates: start: 20131101, end: 20131107
  4. VANCOMYCINE [Concomitant]
     Dosage: UNK
     Dates: start: 20131104, end: 20131111
  5. AMOXICILLIN/CLAVULANIC ACID [Concomitant]
     Dosage: UNK
     Dates: start: 20131108, end: 20131122
  6. OXYCONTIN [Concomitant]
     Dosage: UNK
     Dates: start: 20131106, end: 20131125
  7. OXYNORM [Concomitant]
     Dosage: UNK
     Dates: start: 20131106, end: 20131125
  8. ZAMUDOL [Concomitant]
     Dosage: UNK
     Dates: start: 20131029, end: 20131106

REACTIONS (1)
  - Hepatitis cholestatic [Not Recovered/Not Resolved]
